FAERS Safety Report 8524432-5 (Version None)
Quarter: 2012Q3

REPORT INFORMATION
  Report Type: 
  Country: None (occurrence: None)
  Receive Date: 20120720
  Receipt Date: 20111018
  Transmission Date: 20120928
  Serious: No
  Sender: FDA-Public Use
  Company Number: US-MYLANLABS-2011S1019624

PATIENT
  Age: 76 Year
  Sex: Male

DRUGS (4)
  1. FLOMAX [Concomitant]
  2. CIPROFLOXACIN HCL [Suspect]
     Indication: PROSTATITIS
     Route: 048
  3. GABAPENTIN [Concomitant]
     Indication: NEUROPATHY PERIPHERAL
  4. CIPROFLOXACIN [Suspect]
     Indication: PROSTATITIS
     Route: 048
     Dates: start: 20110403, end: 20110502

REACTIONS (1)
  - BURNING SENSATION [None]
